FAERS Safety Report 14264270 (Version 1)
Quarter: 2017Q4

REPORT INFORMATION
  Report Type: Spontaneous
  Country: JP (occurrence: JP)
  Receive Date: 20171208
  Receipt Date: 20171208
  Transmission Date: 20180321
  Serious: Yes (Death)
  Sender: FDA-Public Use
  Company Number: JP-MALLINCKRODT-T201502563

PATIENT
  Age: 53 Year
  Sex: Male
  Weight: 52 kg

DRUGS (14)
  1. CALONAL [Concomitant]
     Active Substance: ACETAMINOPHEN
     Indication: ANALGESIC THERAPY
     Dosage: 900 MG
     Route: 048
     Dates: start: 20141001
  2. METHADONE [Suspect]
     Active Substance: METHADONE HYDROCHLORIDE
     Dosage: 30 MG; 90 MG DAILY DOSE
     Route: 048
     Dates: start: 20141104, end: 20150421
  3. PERAPRIN [Concomitant]
     Active Substance: METOCLOPRAMIDE
     Indication: PRODUCT USED FOR UNKNOWN INDICATION
     Dosage: 15 MG
     Route: 048
     Dates: start: 20141001
  4. METHADONE [Suspect]
     Active Substance: METHADONE HYDROCHLORIDE
     Dosage: 20 MG; 60 MG DAILY DOSE
     Route: 048
     Dates: start: 20141016, end: 20141026
  5. TAKEPRON [Concomitant]
     Active Substance: LANSOPRAZOLE
     Indication: PRODUCT USED FOR UNKNOWN INDICATION
     Dosage: 30 MG
     Route: 048
     Dates: start: 20141001
  6. LOXONIN [Concomitant]
     Active Substance: LOXOPROFEN SODIUM
     Indication: ANALGESIC THERAPY
     Dosage: 180 MG
     Route: 048
     Dates: start: 20141001
  7. E FEN [Concomitant]
     Indication: ANALGESIC THERAPY
     Dosage: 200 MCG
     Route: 002
     Dates: start: 20141026
  8. METHADONE [Suspect]
     Active Substance: METHADONE HYDROCHLORIDE
     Indication: CANCER PAIN
     Dosage: 20 MG; 40 MG DAILY DOSE
     Route: 048
     Dates: start: 20140926, end: 20140927
  9. METHADONE [Suspect]
     Active Substance: METHADONE HYDROCHLORIDE
     Dosage: 10 MG; 20 MG DAILY DOSE
     Route: 048
     Dates: start: 20140928, end: 20141008
  10. METHADONE [Suspect]
     Active Substance: METHADONE HYDROCHLORIDE
     Dosage: 15 MG; 45 MG DAILY DOSE
     Route: 048
     Dates: start: 20141009, end: 20141015
  11. MAGMITT [Concomitant]
     Active Substance: MAGNESIUM OXIDE
     Indication: PRODUCT USED FOR UNKNOWN INDICATION
     Dosage: 990 MG
     Route: 048
     Dates: start: 20141001
  12. OXYCONTIN [Concomitant]
     Active Substance: OXYCODONE HYDROCHLORIDE
     Indication: ANALGESIC THERAPY
     Dosage: 260 MG
     Route: 048
     Dates: end: 20150420
  13. METHADONE [Suspect]
     Active Substance: METHADONE HYDROCHLORIDE
     Dosage: 80 MG DAILY DOSE
     Route: 048
     Dates: start: 20141027, end: 20141103
  14. MUCOSTA [Concomitant]
     Active Substance: REBAMIPIDE
     Indication: PRODUCT USED FOR UNKNOWN INDICATION
     Dosage: 300 MG
     Route: 048
     Dates: start: 20141001

REACTIONS (2)
  - Somnolence [Recovered/Resolved]
  - Malignant mediastinal neoplasm [Fatal]

NARRATIVE: CASE EVENT DATE: 20140926
